FAERS Safety Report 5407845-X (Version None)
Quarter: 2007Q3

REPORT INFORMATION
  Report Type: 
  Country: None (occurrence: None)
  Receive Date: 20070713
  Receipt Date: 20070501
  Transmission Date: 20080115
  Serious: No
  Sender: FDA-Public Use
  Company Number: 2007SP001600

PATIENT
  Age: 66 Year
  Sex: Female
  Weight: 72.5755 kg

DRUGS (3)
  1. LUNESTA [Suspect]
     Indication: INSOMNIA
     Dosage: 3 MG; 1X; ORAL
     Route: 048
     Dates: start: 20070411, end: 20070411
  2. DIPHENHYDRAMINE HCL [Concomitant]
  3. PROPOXYPHENE HYDROCHLORIDE [Concomitant]

REACTIONS (3)
  - DYSGEUSIA [None]
  - HYPERSENSITIVITY [None]
  - PARAESTHESIA [None]
